FAERS Safety Report 20582727 (Version 1)
Quarter: 2022Q1

REPORT INFORMATION
  Report Type: Report from Study
  Country: FR (occurrence: FR)
  Receive Date: 20220311
  Receipt Date: 20220311
  Transmission Date: 20220423
  Serious: Yes (Hospitalization)
  Sender: FDA-Public Use
  Company Number: FR-PFIZER INC-202200358447

PATIENT
  Age: 16 Year
  Sex: Male

DRUGS (3)
  1. PREGABALIN [Suspect]
     Active Substance: PREGABALIN
     Dosage: 700 MG, DAILY
     Dates: start: 2020, end: 2021
  2. CANNABIS SATIVA SUBSP. INDICA TOP [Concomitant]
     Active Substance: CANNABIS SATIVA SUBSP. INDICA TOP
     Dosage: UNK
  3. TOBACCO LEAF [Concomitant]
     Active Substance: TOBACCO LEAF
     Dosage: UNK

REACTIONS (6)
  - Overdose [Unknown]
  - Drug dependence [Unknown]
  - Withdrawal syndrome [Unknown]
  - Aggression [Unknown]
  - Anxiety [Unknown]
  - Thinking abnormal [Unknown]

NARRATIVE: CASE EVENT DATE: 20200101
